FAERS Safety Report 8052890-1 (Version None)
Quarter: 2012Q1

REPORT INFORMATION
  Report Type: 
  Country: None (occurrence: None)
  Receive Date: 20120118
  Receipt Date: 20120111
  Transmission Date: 20120608
  Serious: Yes (Hospitalization)
  Sender: FDA-Public Use
  Company Number: ES-AMGEN-ESPSP2012002198

PATIENT
  Sex: Female

DRUGS (3)
  1. ARANESP [Suspect]
     Indication: RENAL FAILURE CHRONIC
  2. ARANESP [Suspect]
     Indication: RENAL FAILURE
     Dosage: 100 MUG, UNK
     Route: 058
     Dates: start: 20110101, end: 20110101
  3. CALCITRIOL [Suspect]
     Dosage: UNK
     Dates: start: 20110101, end: 20110101

REACTIONS (1)
  - DERMATITIS BULLOUS [None]
